FAERS Safety Report 22090957 (Version 1)
Quarter: 2023Q1

REPORT INFORMATION
  Report Type: Report from Study
  Country: CA (occurrence: CA)
  Receive Date: 20230314
  Receipt Date: 20230314
  Transmission Date: 20230417
  Serious: Yes (Other)
  Sender: FDA-Public Use
  Company Number: CA-JNJFOC-20230321768

PATIENT
  Age: 60 Year
  Sex: Female

DRUGS (1)
  1. REMICADE [Suspect]
     Active Substance: INFLIXIMAB
     Indication: Behcet^s syndrome
     Route: 042

REACTIONS (4)
  - Behcet^s syndrome [Unknown]
  - Swelling face [Unknown]
  - Infusion related reaction [Unknown]
  - Pain in jaw [Unknown]

NARRATIVE: CASE EVENT DATE: 20230308
